FAERS Safety Report 6703942-7 (Version None)
Quarter: 2010Q2

REPORT INFORMATION
  Report Type: 
  Country: None (occurrence: None)
  Receive Date: 20100430
  Receipt Date: 20100420
  Transmission Date: 20101027
  Serious: Yes (Other)
  Sender: FDA-Public Use
  Company Number: BR-PFIZER INC-2009303066

PATIENT
  Age: 73 Year
  Sex: Male

DRUGS (5)
  1. DETRUSITOL LA [Suspect]
     Indication: URINARY INCONTINENCE
     Dosage: 4 MG, 1X/DAY
     Route: 048
     Dates: start: 20010101
  2. OXYBUTYNIN [Suspect]
     Indication: URINARY INCONTINENCE
     Route: 048
  3. GLUCOFORMIN [Concomitant]
     Indication: BLOOD GLUCOSE INCREASED
     Dosage: UNK
  4. CAPTOPRIL [Concomitant]
     Dosage: UNK
  5. NORVASC [Concomitant]
     Dosage: UNK

REACTIONS (14)
  - BEDRIDDEN [None]
  - BENIGN PROSTATIC HYPERPLASIA [None]
  - DEHYDRATION [None]
  - DRY MOUTH [None]
  - FATIGUE [None]
  - FEELING ABNORMAL [None]
  - LARYNGITIS [None]
  - MIDDLE INSOMNIA [None]
  - NO THERAPEUTIC RESPONSE [None]
  - NOCTURIA [None]
  - PHARYNGITIS [None]
  - POOR QUALITY SLEEP [None]
  - PYREXIA [None]
  - TACHYCARDIA [None]
